FAERS Safety Report 10756980 (Version 2)
Quarter: 2015Q1

REPORT INFORMATION
  Report Type: Spontaneous
  Country: JP (occurrence: JP)
  Receive Date: 20150203
  Receipt Date: 20150218
  Transmission Date: 20150721
  Serious: No
  Sender: FDA-Public Use
  Company Number: ALJP2015JP000465

PATIENT
  Age: 80 Year
  Sex: Male

DRUGS (5)
  1. NEVANAC [Suspect]
     Active Substance: NEPAFENAC
     Indication: PREOPERATIVE CARE
     Dosage: 1 GTT, TID, OD
     Route: 047
     Dates: start: 20150116, end: 20150120
  2. CRAVIT [Concomitant]
     Active Substance: LEVOFLOXACIN
     Indication: PREOPERATIVE CARE
     Dosage: 1 GTT, TID
     Route: 047
     Dates: start: 20150116, end: 20150120
  3. AZOPT [Concomitant]
     Active Substance: BRINZOLAMIDE
     Indication: GLAUCOMA
     Dosage: 1 GTT, BID
     Route: 047
  4. NEVANAC [Suspect]
     Active Substance: NEPAFENAC
     Indication: POSTOPERATIVE CARE
  5. POVIDONE IODINE [Concomitant]
     Active Substance: POVIDONE-IODINE
     Indication: SURGICAL PRECONDITIONING
     Dosage: 1 DF, ONCE/SINGLE
     Route: 047
     Dates: start: 20150119, end: 20150119

REACTIONS (2)
  - Foreign body sensation in eyes [Recovered/Resolved]
  - Corneal erosion [Recovered/Resolved]

NARRATIVE: CASE EVENT DATE: 20150119
